FAERS Safety Report 5133559-X (Version None)
Quarter: 2006Q4

REPORT INFORMATION
  Report Type: 
  Country: None (occurrence: None)
  Receive Date: 20061018
  Receipt Date: 20061004
  Transmission Date: 20070319
  Serious: Yes (Death)
  Sender: FDA-Public Use
  Company Number: 2006BH013648

PATIENT
  Age: 98 Year
  Sex: Female

DRUGS (1)
  1. CPD BLOOD-PACK UNIT [Suspect]
     Indication: BLOOD PRODUCT TRANSFUSION
     Dosage: 250 ML; ONCE; IV
     Route: 042
     Dates: start: 20060919, end: 20060919

REACTIONS (7)
  - BLOOD PRESSURE DECREASED [None]
  - BODY TEMPERATURE INCREASED [None]
  - HEART RATE INCREASED [None]
  - POOR QUALITY DRUG ADMINISTERED [None]
  - THERAPEUTIC PRODUCT CONTAMINATION [None]
  - TREMOR [None]
  - YERSINIA INFECTION [None]
